FAERS Safety Report 6170128-7 (Version None)
Quarter: 2009Q2

REPORT INFORMATION
  Report Type: 
  Country: None (occurrence: None)
  Receive Date: 20090428
  Receipt Date: 20090424
  Transmission Date: 20091009
  Serious: Yes (Hospitalization)
  Sender: FDA-Public Use
  Company Number: B0572027A

PATIENT
  Sex: Female

DRUGS (5)
  1. VALTREX [Suspect]
     Indication: HERPES ZOSTER
     Route: 065
  2. VITAMIN B-12 [Concomitant]
  3. FOLACIN [Concomitant]
  4. TROMBYL [Concomitant]
  5. DIOVAN [Concomitant]

REACTIONS (3)
  - CONFUSIONAL STATE [None]
  - ESCHERICHIA URINARY TRACT INFECTION [None]
  - HALLUCINATION [None]
